FAERS Safety Report 6129260-6 (Version None)
Quarter: 2009Q1

REPORT INFORMATION
  Report Type: 
  Country: None (occurrence: None)
  Receive Date: 20090324
  Receipt Date: 20090311
  Transmission Date: 20090719
  Serious: Yes (Hospitalization, Other)
  Sender: FDA-Public Use
  Company Number: US-ROCHE-612884

PATIENT
  Sex: Male
  Weight: 131.1 kg

DRUGS (9)
  1. PEGASYS [Suspect]
     Indication: HEPATITIS C
     Route: 058
     Dates: start: 20081113, end: 20081224
  2. COPEGUS [Suspect]
     Indication: HEPATITIS C
     Route: 048
     Dates: start: 20081113, end: 20081224
  3. RAMIPRIL [Concomitant]
     Route: 048
     Dates: start: 20090105
  4. ZOLOFT [Concomitant]
     Route: 048
     Dates: start: 20090105
  5. CRESTOR [Concomitant]
     Route: 048
     Dates: start: 20090105
  6. MINOCYCLINE HCL [Concomitant]
     Dosage: DOSAGE RECEIVED DAILY
     Route: 048
     Dates: start: 20090105
  7. LASIX [Concomitant]
     Route: 048
     Dates: start: 20090105
  8. SPIRONOLACTONE [Concomitant]
     Route: 048
     Dates: start: 20090105
  9. PRILOSEC [Concomitant]
     Route: 048
     Dates: start: 20090105

REACTIONS (5)
  - ABDOMINAL PAIN [None]
  - DIARRHOEA [None]
  - HEPATIC FAILURE [None]
  - PYREXIA [None]
  - VOMITING [None]
